FAERS Safety Report 5242187-7 (Version None)
Quarter: 2007Q1

REPORT INFORMATION
  Report Type: 
  Country: None (occurrence: None)
  Receive Date: 20070220
  Receipt Date: 20070209
  Transmission Date: 20070707
  Serious: Yes (Other)
  Sender: FDA-Public Use
  Company Number: US-JNJFOC-20070204353

PATIENT
  Sex: Male

DRUGS (7)
  1. REMICADE [Suspect]
  2. REMICADE [Suspect]
     Indication: DRUG EXPOSURE DURING PREGNANCY
  3. TERBUTALINE SULFATE [Concomitant]
  4. FLINTSTONE VITAMINS [Concomitant]
  5. INJECTION TO DEVELOP LUNGS [Concomitant]
  6. MAGNESIUM [Concomitant]
  7. ANTIBIOTICS [Concomitant]
     Indication: BACTERIAL INFECTION

REACTIONS (1)
  - HYPOSPADIAS [None]
